FAERS Safety Report 8297497-6 (Version None)
Quarter: 2012Q2

REPORT INFORMATION
  Report Type: 
  Country: None (occurrence: None)
  Receive Date: 20120417
  Receipt Date: 20120409
  Transmission Date: 20120825
  Serious: Yes (Hospitalization)
  Sender: FDA-Public Use
  Company Number: 2012SP018591

PATIENT
  Age: 56 Year
  Sex: Female

DRUGS (3)
  1. DEPAKENE [Concomitant]
  2. NICETILE [Concomitant]
  3. TEMOZOLOMIDE [Suspect]
     Indication: GLIOBLASTOMA MULTIFORME
     Dosage: 75;200 MG/M2; QD

REACTIONS (2)
  - ORGANISING PNEUMONIA [None]
  - PLEURAL EFFUSION [None]
